FAERS Safety Report 20035851 (Version 5)
Quarter: 2022Q2

REPORT INFORMATION
  Report Type: Spontaneous
  Country: GB (occurrence: GB)
  Receive Date: 20211105
  Receipt Date: 20220608
  Transmission Date: 20220720
  Serious: Yes (Other)
  Sender: FDA-Public Use
  Company Number: GB-ROCHE-2861190

PATIENT
  Age: 65 Year
  Sex: Male
  Weight: 87.5 kg

DRUGS (35)
  1. BEVACIZUMAB [Suspect]
     Active Substance: BEVACIZUMAB
     Indication: Non-small cell lung cancer
     Dosage: UNK MILLIGRAM
     Route: 042
  2. BEVACIZUMAB [Suspect]
     Active Substance: BEVACIZUMAB
     Dosage: 1200 MILLIGRAM, DATE OF RECENT DOSE OF STUDY DRUG: 31/MAY/2021
     Route: 042
  3. ATEZOLIZUMAB [Suspect]
     Active Substance: ATEZOLIZUMAB
     Indication: Non-small cell lung cancer
     Dosage: 1200 MILLIGRAM
     Route: 041
  4. ATEZOLIZUMAB [Suspect]
     Active Substance: ATEZOLIZUMAB
     Dosage: 1200 MILLIGRAM
     Route: 041
  5. CARBOPLATIN [Suspect]
     Active Substance: CARBOPLATIN
     Indication: Non-small cell lung cancer
     Dosage: 400 MILLIGRAM
     Route: 065
  6. CARBOPLATIN [Suspect]
     Active Substance: CARBOPLATIN
     Dosage: 400 MILLIGRAM, DATE OF RECENT DOSE OF STUDY DRUG: 31/MAY/2021
     Route: 065
  7. PACLITAXEL [Suspect]
     Active Substance: PACLITAXEL
     Indication: Non-small cell lung cancer
     Dosage: 270 MILLIGRAM
     Route: 065
  8. PACLITAXEL [Suspect]
     Active Substance: PACLITAXEL
     Dosage: 270 MILLIGRAM, DATE OF RECENT DOSE OF STUDY DRUG: 31/MAY/2021
     Route: 065
  9. AFATINIB [Concomitant]
     Active Substance: AFATINIB
     Indication: Neoplasm malignant
     Dosage: UNK
     Route: 065
  10. DEXAMETHASONE [Concomitant]
     Active Substance: DEXAMETHASONE
     Dosage: 16.5 MILLIGRAM
     Route: 065
     Dates: start: 20210416, end: 20210416
  11. DEXAMETHASONE [Concomitant]
     Active Substance: DEXAMETHASONE
     Dosage: 13.2 MILLIGRAM
     Route: 065
     Dates: start: 20210531, end: 20210531
  12. DEXAMETHASONE [Concomitant]
     Active Substance: DEXAMETHASONE
     Dosage: 16.5 MILLIGRAM
     Route: 065
     Dates: start: 20210621, end: 20210621
  13. CALCIUM CARBONATE\CHOLECALCIFEROL [Concomitant]
     Active Substance: CALCIUM CARBONATE\CHOLECALCIFEROL
     Indication: Prophylaxis
     Dosage: UNK, BID
     Route: 065
  14. ERLOTINIB [Concomitant]
     Active Substance: ERLOTINIB
     Indication: Neoplasm malignant
     Dosage: UNK
     Route: 065
  15. ERLOTINIB [Concomitant]
     Active Substance: ERLOTINIB
     Indication: Neoplasm malignant
  16. FAMOTIDINE [Concomitant]
     Active Substance: FAMOTIDINE
     Dosage: 20 MILLIGRAM
     Route: 065
     Dates: start: 20210416, end: 20210416
  17. FAMOTIDINE [Concomitant]
     Active Substance: FAMOTIDINE
     Dosage: 20 MILLIGRAM
     Route: 065
     Dates: start: 20210531, end: 20210531
  18. FAMOTIDINE [Concomitant]
     Active Substance: FAMOTIDINE
     Dosage: 20 MILLIGRAM
     Route: 065
     Dates: start: 20210621, end: 20210621
  19. FELODIPINE [Concomitant]
     Active Substance: FELODIPINE
     Dosage: 20 MILLIGRAM, QD
     Route: 065
     Dates: start: 20210416, end: 20210416
  20. LEVOTHYROXINE [Concomitant]
     Active Substance: LEVOTHYROXINE
     Dosage: UNK, BID
     Route: 065
  21. LEVOTHYROXINE [Concomitant]
     Active Substance: LEVOTHYROXINE
     Dosage: UNK, BID
     Route: 065
  22. OMEPRAZOLE [Concomitant]
     Active Substance: OMEPRAZOLE
     Indication: Prophylaxis
     Dosage: UNK, BID
     Route: 065
  23. OMEPRAZOLE [Concomitant]
     Active Substance: OMEPRAZOLE
     Dosage: UNK, BID
     Route: 065
  24. ONDANSETRON [Concomitant]
     Active Substance: ONDANSETRON
     Dosage: 16 MILLIGRAM
     Route: 065
     Dates: start: 20210416, end: 20210416
  25. ONDANSETRON [Concomitant]
     Active Substance: ONDANSETRON
     Dosage: 16 MILLIGRAM
     Route: 065
     Dates: start: 20210531, end: 20210531
  26. ONDANSETRON [Concomitant]
     Active Substance: ONDANSETRON
     Dosage: 16 MILLIGRAM
     Route: 065
     Dates: start: 20210621, end: 20210621
  27. COVID-19 VACCINE [Concomitant]
     Dosage: UNK
     Route: 065
  28. DOMPERIDONE [Concomitant]
     Active Substance: DOMPERIDONE
  29. FLUOXETINE [Concomitant]
     Active Substance: FLUOXETINE HYDROCHLORIDE
     Indication: Prophylaxis
     Dosage: UNK UNK, QD
     Dates: start: 20211011
  30. LACTULOSE [Concomitant]
     Active Substance: LACTULOSE
  31. LORAZEPAM [Concomitant]
     Active Substance: LORAZEPAM
     Dosage: UNK
     Route: 065
     Dates: start: 20211011
  32. MAGNESIUM ASPARTATE [Concomitant]
     Active Substance: MAGNESIUM ASPARTATE
  33. METOCLOPRAMIDE [Concomitant]
     Active Substance: METOCLOPRAMIDE
     Dosage: UNK
     Route: 065
     Dates: start: 20210914
  34. ACETAMINOPHEN [Concomitant]
     Active Substance: ACETAMINOPHEN
     Dosage: UNK
     Route: 065
     Dates: start: 20220510
  35. SENNA [Concomitant]
     Active Substance: SENNA LEAF\SENNOSIDES\SENNOSIDES A AND B

REACTIONS (3)
  - Autoimmune hepatitis [Recovered/Resolved]
  - Liver function test abnormal [Recovered/Resolved]
  - Constipation [Not Recovered/Not Resolved]

NARRATIVE: CASE EVENT DATE: 20210506
